FAERS Safety Report 6509926-6 (Version None)
Quarter: 2009Q4

REPORT INFORMATION
  Report Type: 
  Country: None (occurrence: None)
  Receive Date: 20091222
  Receipt Date: 20091211
  Transmission Date: 20100525
  Serious: Yes (Hospitalization, Other)
  Sender: FDA-Public Use
  Company Number: PHHY2009BR55159

PATIENT
  Age: 77 Year
  Sex: Female
  Weight: 80 kg

DRUGS (1)
  1. ACLASTA [Suspect]
     Indication: OSTEOPOROSIS
     Dosage: 5 MG, ANNUAL
     Dates: start: 20080101

REACTIONS (3)
  - BRONCHOPULMONARY DISEASE [None]
  - DECREASED APPETITE [None]
  - HYDROCEPHALUS [None]
